FAERS Safety Report 8967409 (Version 3)
Quarter: 2013Q1

REPORT INFORMATION
  Report Type: Spontaneous
  Country: US (occurrence: US)
  Receive Date: 20121217
  Receipt Date: 20130204
  Transmission Date: 20140127
  Serious: Yes (Hospitalization)
  Sender: FDA-Public Use
  Company Number: US-BIOGENIDEC-2012BI058918

PATIENT
  Age: 48 Year
  Sex: Female

DRUGS (2)
  1. AVONEX [Suspect]
     Indication: MULTIPLE SCLEROSIS
     Route: 030
     Dates: start: 201110
  2. GLYBURIDE [Concomitant]
     Indication: DIABETES MELLITUS
     Dates: start: 201103

REACTIONS (13)
  - Multiple sclerosis [Unknown]
  - Vertigo [Recovered/Resolved]
  - Wheezing [Recovered/Resolved]
  - Mobility decreased [Recovered/Resolved]
  - Loss of control of legs [Recovered/Resolved]
  - Musculoskeletal disorder [Recovered/Resolved]
  - Hypoaesthesia [Recovered/Resolved]
  - Drug dose omission [Unknown]
  - Hyperhidrosis [Recovered/Resolved]
  - Dizziness [Recovered/Resolved]
  - Multiple sclerosis relapse [Recovered/Resolved]
  - Paraesthesia [Recovered/Resolved]
  - Muscular weakness [Not Recovered/Not Resolved]
